FAERS Safety Report 8160584-7 (Version None)
Quarter: 2012Q1

REPORT INFORMATION
  Report Type: 
  Country: None (occurrence: None)
  Receive Date: 20120223
  Receipt Date: 20120214
  Transmission Date: 20120608
  Serious: Yes (Hospitalization, Other)
  Sender: FDA-Public Use
  Company Number: BR-ASTRAZENECA-2011SE43766

PATIENT
  Age: 79 Year
  Sex: Female
  Weight: 91 kg

DRUGS (4)
  1. ATACAND [Suspect]
     Indication: HYPERTENSION
     Route: 048
     Dates: end: 20090101
  2. METFORMIN HCL [Concomitant]
     Indication: DIABETES MELLITUS
     Route: 048
     Dates: start: 20010101
  3. INDAPAMIDE [Concomitant]
     Indication: HYPERTENSION
     Route: 048
  4. ATACAND HCT [Suspect]
     Indication: HYPERTENSION
     Dosage: 16/12.5 MG OD
     Route: 048
     Dates: start: 20090101, end: 20101101

REACTIONS (7)
  - URINE OUTPUT INCREASED [None]
  - DIABETES MELLITUS INADEQUATE CONTROL [None]
  - NOSOCOMIAL INFECTION [None]
  - ARTHRALGIA [None]
  - OEDEMA PERIPHERAL [None]
  - VULVAL CANCER [None]
  - DYSPEPSIA [None]
